FAERS Safety Report 8888281 (Version 1)
Quarter: 2012Q4

REPORT INFORMATION
  Report Type: 
  Country: US (occurrence: US)
  Receive Date: 20121106
  Receipt Date: 20121106
  Transmission Date: 20130627
  Serious: Yes (Hospitalization, Other)
  Sender: FDA-Public Use
  Company Number: US-PFIZER INC-2012274896

PATIENT
  Age: 50 Year
  Sex: Male
  Weight: 88.44 kg

DRUGS (8)
  1. CELEBREX [Suspect]
     Indication: BACK DISORDER
     Dosage: 200 mg, 1x/day
     Route: 048
     Dates: start: 200809
  2. CELEBREX [Suspect]
     Indication: NECK DISCOMFORT
  3. LYRICA [Suspect]
     Indication: FIBROMYALGIA
     Dosage: 150 mg, 2x/day
     Route: 048
     Dates: start: 2008
  4. CYMBALTA [Concomitant]
     Dosage: 60 mg, 2x/day
  5. VICTOZA [Concomitant]
     Dosage: 1.2 mg, 1x/day
  6. METFORMIN [Concomitant]
     Dosage: 1000 mg, 2x/day
  7. PRAVASTATIN [Concomitant]
     Dosage: 10 mg, 1x/day
  8. BYSTOLIC [Concomitant]
     Dosage: 10 mg, 1x/day

REACTIONS (2)
  - Diabetes mellitus [Unknown]
  - Diabetic coma [Unknown]
